FAERS Safety Report 7358525-5 (Version None)
Quarter: 2011Q1

REPORT INFORMATION
  Report Type: 
  Country: None (occurrence: None)
  Receive Date: 20110317
  Receipt Date: 20110314
  Transmission Date: 20110831
  Serious: Yes (Other)
  Sender: FDA-Public Use
  Company Number: DE-TEVA-268168GER

PATIENT
  Age: 20 Year
  Sex: Female

DRUGS (2)
  1. METHOTREXATE [Suspect]
  2. INFLIXIMAB [Suspect]
     Indication: JUVENILE ARTHRITIS

REACTIONS (1)
  - CERVICAL DYSPLASIA [None]
